FAERS Safety Report 11160045 (Version 3)
Quarter: 2015Q3

REPORT INFORMATION
  Report Type: Spontaneous
  Country: GB (occurrence: GB)
  Receive Date: 20150603
  Receipt Date: 20150716
  Transmission Date: 20151125
  Serious: Yes (Other)
  Sender: FDA-Public Use
  Company Number: PHFR2015GB004226

PATIENT
  Age: 70 Year
  Sex: Female
  Weight: 63 kg

DRUGS (1)
  1. NILOTINIB [Suspect]
     Active Substance: NILOTINIB
     Indication: CHRONIC MYELOID LEUKAEMIA
     Route: 065

REACTIONS (8)
  - Anti-neutrophil cytoplasmic antibody positive vasculitis [Unknown]
  - Hepatomegaly [Unknown]
  - Blood bilirubin increased [Unknown]
  - Decreased appetite [Unknown]
  - Liver disorder [Unknown]
  - Abdominal pain upper [Recovered/Resolved]
  - Weight decreased [Unknown]
  - Liver tenderness [Unknown]

NARRATIVE: CASE EVENT DATE: 201505
